FAERS Safety Report 23313881 (Version 3)
Quarter: 2024Q1

REPORT INFORMATION
  Report Type: Report from Study
  Country: FR (occurrence: FR)
  Receive Date: 20231219
  Receipt Date: 20240102
  Transmission Date: 20240410
  Serious: Yes (Hospitalization)
  Sender: FDA-Public Use
  Company Number: FR-SA-SAC20231215000862

PATIENT
  Age: 60 Year
  Sex: Male
  Weight: 65 kg

DRUGS (8)
  1. ISATUXIMAB [Suspect]
     Active Substance: ISATUXIMAB
     Indication: Plasma cell myeloma
     Dosage: 660 MG; D1 AND D15
     Route: 042
     Dates: start: 20221216, end: 20221216
  2. ISATUXIMAB [Suspect]
     Active Substance: ISATUXIMAB
     Dosage: 660 MG; D1 AND D15
     Route: 042
     Dates: start: 20231023, end: 20231023
  3. CARFILZOMIB [Suspect]
     Active Substance: CARFILZOMIB
     Indication: Plasma cell myeloma
     Dosage: 100 MG, D1,8 AND 15
     Route: 042
     Dates: start: 20221216, end: 20221216
  4. CARFILZOMIB [Suspect]
     Active Substance: CARFILZOMIB
     Dosage: 100 MG, D1,8 AND 15
     Route: 042
     Dates: start: 20231023, end: 20231023
  5. LENALIDOMIDE [Suspect]
     Active Substance: LENALIDOMIDE
     Indication: Plasma cell myeloma
     Dosage: 10 MG; D1, D21
     Route: 048
     Dates: start: 20231117, end: 20231117
  6. LENALIDOMIDE [Suspect]
     Active Substance: LENALIDOMIDE
     Dosage: 10 MG; D1, D21
     Route: 048
     Dates: start: 20231207, end: 20231207
  7. DEXAMETHASONE [Suspect]
     Active Substance: DEXAMETHASONE
     Indication: Plasma cell myeloma
     Dosage: 40 MG; D1, 8, 15 AND 22
     Route: 042
     Dates: start: 20221216, end: 20221216
  8. DEXAMETHASONE [Suspect]
     Active Substance: DEXAMETHASONE
     Dosage: 40 MG; D1, 8, 15 AND 22
     Route: 042
     Dates: start: 20231030, end: 20231030

REACTIONS (1)
  - Lung disorder [Recovered/Resolved]

NARRATIVE: CASE EVENT DATE: 20231213
